FAERS Safety Report 5930037-2 (Version None)
Quarter: 2008Q4

REPORT INFORMATION
  Report Type: 
  Country: None (occurrence: None)
  Receive Date: 20081024
  Receipt Date: 20081013
  Transmission Date: 20090506
  Serious: Yes (Hospitalization, Other)
  Sender: FDA-Public Use
  Company Number: US-PFIZER INC-2008086623

PATIENT
  Sex: Female
  Weight: 89.4 kg

DRUGS (4)
  1. LYRICA [Suspect]
     Indication: MIGRAINE
  2. LEVOTHYROXINE SODIUM [Concomitant]
  3. DIAZEPAM [Concomitant]
  4. INDOMETHACIN [Concomitant]

REACTIONS (3)
  - BIPOLAR DISORDER [None]
  - DEPRESSION [None]
  - MIGRAINE [None]
